FAERS Safety Report 21218139 (Version 1)
Quarter: 2022Q3

REPORT INFORMATION
  Report Type: Spontaneous
  Country: US (occurrence: US)
  Receive Date: 20220816
  Receipt Date: 20220816
  Transmission Date: 20221027
  Serious: No
  Sender: FDA-Public Use
  Company Number: US-BION-009968

PATIENT

DRUGS (1)
  1. DIPHENHYDRAMINE [Suspect]
     Active Substance: DIPHENHYDRAMINE
     Indication: Hypersensitivity
     Dosage: STRENGTH: 50MG, ONE SOFTGEL EACH TIME

REACTIONS (2)
  - Somnolence [Unknown]
  - Drug effective for unapproved indication [Not Recovered/Not Resolved]
